FAERS Safety Report 24828825 (Version 1)
Quarter: 2025Q1

REPORT INFORMATION
  Report Type: Spontaneous
  Country: US (occurrence: US)
  Receive Date: 20250110
  Receipt Date: 20250110
  Transmission Date: 20250409
  Serious: Yes (Other)
  Sender: JOHNSON AND JOHNSON
  Company Number: US-JNJFOC-20250118954

PATIENT

DRUGS (3)
  1. DARZALEX [Suspect]
     Active Substance: DARATUMUMAB
     Indication: Plasma cell myeloma
     Route: 065
     Dates: start: 202205, end: 202407
  2. POMALIDOMIDE [Suspect]
     Active Substance: POMALIDOMIDE
     Dates: start: 202205, end: 202407
  3. DEXAMETHASONE [Suspect]
     Active Substance: DEXAMETHASONE
     Dates: start: 202205, end: 202407

REACTIONS (2)
  - Plasmacytoma [Unknown]
  - Bone lesion [Unknown]
